FAERS Safety Report 15880190 (Version 1)
Quarter: 2019Q1

REPORT INFORMATION
  Report Type: Spontaneous
  Country: US (occurrence: US)
  Receive Date: 20190128
  Receipt Date: 20190128
  Transmission Date: 20190417
  Serious: Yes (Hospitalization)
  Sender: FDA-Public Use
  Company Number: None

PATIENT
  Sex: Female

DRUGS (9)
  1. MELOXICAM, GABAPENTIN, METFORMIN, PREMARIN, GEMFIBROZIL, FREESTYLE [Concomitant]
  2. LIDOCAINE, SPIRIVA, BASAGLAR, FLURAZEPAM, ESZOPICLONE, VIT D [Concomitant]
  3. TRIAMCINOLON, ESZOPICLONE [Concomitant]
  4. HUMIRA [Suspect]
     Active Substance: ADALIMUMAB
     Indication: DERMATITIS ATOPIC
     Dosage: ?          OTHER FREQUENCY:EVERY 3 WEEKS;?
     Route: 058
     Dates: start: 20160317
  5. ESZOPICLONE, MELOXICAM, LYRICA, MOVANTIK, CETRIIRIZINE, ALBUTEROL [Concomitant]
  6. ADMELOG, ROPINIROLE, SURALFATE, FLURAZEPAM, SMZ, TMP, LACTULOSE, POLYE [Concomitant]
  7. LYRICA, FLUCONAZOLE, MONTELUKAST, MIRAZAPINE, ATORVASTATIN [Concomitant]
  8. CLOBETASOL, CLONAZAPAM, FLURAZEPAM, VIT D [Concomitant]
  9. OXYCONTIN, NITROFUR, ESZOPICLONE, CLONAZEPAM, AMITRIPTYLIN, [Concomitant]

REACTIONS (4)
  - Memory impairment [None]
  - Loss of consciousness [None]
  - Viral infection [None]
  - Pyrexia [None]
